FAERS Safety Report 14183397 (Version 2)
Quarter: 2018Q1

REPORT INFORMATION
  Report Type: Spontaneous
  Country: US (occurrence: US)
  Receive Date: 20171113
  Receipt Date: 20180216
  Transmission Date: 20180508
  Serious: Yes (Hospitalization)
  Sender: FDA-Public Use
  Company Number: US-JNJFOC-20171102969

PATIENT
  Age: 52 Year
  Sex: Female

DRUGS (8)
  1. METFORMIN [Concomitant]
     Active Substance: METFORMIN HYDROCHLORIDE
     Indication: DIABETES MELLITUS
     Dosage: 500 MG AND 1000 MG
     Route: 065
     Dates: start: 1992
  2. AMARYL [Concomitant]
     Active Substance: GLIMEPIRIDE
     Indication: PRODUCT USED FOR UNKNOWN INDICATION
     Route: 065
  3. INVOKANA [Suspect]
     Active Substance: CANAGLIFLOZIN
     Indication: DIABETES MELLITUS
     Route: 048
     Dates: start: 201503, end: 201607
  4. TRADJENTA [Concomitant]
     Active Substance: LINAGLIPTIN
     Indication: DIABETES MELLITUS
     Route: 065
  5. GLUCOTROL [Concomitant]
     Active Substance: GLIPIZIDE
     Indication: PRODUCT USED FOR UNKNOWN INDICATION
     Route: 065
  6. LISINOPRIL. [Concomitant]
     Active Substance: LISINOPRIL
     Indication: HYPERTENSION
     Route: 065
     Dates: start: 201607
  7. ACIDOPHILUS PROBIOTIC [Concomitant]
     Indication: PROBIOTIC THERAPY
     Route: 065
     Dates: start: 201607
  8. LASIX [Concomitant]
     Active Substance: FUROSEMIDE
     Indication: OEDEMA
     Route: 065
     Dates: start: 201607

REACTIONS (8)
  - Neuropathic arthropathy [Not Recovered/Not Resolved]
  - Arteriosclerosis [Unknown]
  - Osteomyelitis [Not Recovered/Not Resolved]
  - Cellulitis [Unknown]
  - Gas gangrene [Unknown]
  - Leg amputation [Unknown]
  - Gangrene [Unknown]
  - Toe amputation [Unknown]

NARRATIVE: CASE EVENT DATE: 201510
